FAERS Safety Report 18090245 (Version 1)
Quarter: 2020Q3

REPORT INFORMATION
  Report Type: Spontaneous
  Country: CN (occurrence: CN)
  Receive Date: 20200730
  Receipt Date: 20200730
  Transmission Date: 20201103
  Serious: Yes (Other)
  Sender: FDA-Public Use
  Company Number: CN-BAXTER-2020BAX015463

PATIENT
  Age: 64 Year
  Sex: Female
  Weight: 41 kg

DRUGS (6)
  1. ENDOXAN [Suspect]
     Active Substance: CYCLOPHOSPHAMIDE
     Dosage: SECOND CYCLE OF ADJUVANT CHEMOTHERAPY
     Route: 041
     Dates: start: 20200403, end: 20200404
  2. ENDOXAN [Suspect]
     Active Substance: CYCLOPHOSPHAMIDE
     Indication: BREAST CANCER FEMALE
     Dosage: FIRST CYCLE OF ADJUVANT CHEMOTHERAPY
     Route: 041
  3. EPIRUBICIN HYDROCHLORIDE. [Suspect]
     Active Substance: EPIRUBICIN HYDROCHLORIDE
     Dosage: DOSE RE?INTRODUCED
     Route: 041
  4. ENDOXAN [Suspect]
     Active Substance: CYCLOPHOSPHAMIDE
     Dosage: DOSE RE?INTRODUCED
     Route: 041
  5. EPIRUBICIN HYDROCHLORIDE. [Suspect]
     Active Substance: EPIRUBICIN HYDROCHLORIDE
     Indication: BREAST CANCER FEMALE
     Dosage: FIRST CYCLE OF ADJUVANT CHEMOTHERAPY
     Route: 041
  6. EPIRUBICIN HYDROCHLORIDE. [Suspect]
     Active Substance: EPIRUBICIN HYDROCHLORIDE
     Dosage: SECOND CYCLE OF ADJUVANT CHEMOTHERAPY
     Route: 041
     Dates: start: 20200403, end: 20200404

REACTIONS (2)
  - Nausea [Recovering/Resolving]
  - Quadriplegia [Recovering/Resolving]

NARRATIVE: CASE EVENT DATE: 20200404
